FAERS Safety Report 13355626 (Version 1)
Quarter: 2017Q1

REPORT INFORMATION
  Report Type: Spontaneous
  Country: US (occurrence: US)
  Receive Date: 20170321
  Receipt Date: 20170321
  Transmission Date: 20170429
  Serious: Yes (Hospitalization, Other)
  Sender: FDA-Public Use
  Company Number: US-TAKEDA-2017TUS005757

PATIENT
  Sex: Female
  Weight: 96.6 kg

DRUGS (14)
  1. HYDROCODONE BITARTRATE AND ACETAMINOPHEN [Concomitant]
     Active Substance: ACETAMINOPHEN\HYDROCODONE BITARTRATE
     Indication: PAIN
     Dosage: 5/325 MG
     Route: 048
  2. COREG [Concomitant]
     Active Substance: CARVEDILOL
     Indication: HYPERTENSION
     Dosage: 5 MG, BID
  3. COLCRYS [Suspect]
     Active Substance: COLCHICINE
     Indication: PROPHYLAXIS
     Dosage: UNK UNK, QD
     Route: 048
     Dates: end: 20170312
  4. FLUTICASONE. [Concomitant]
     Active Substance: FLUTICASONE
     Indication: ALLERGIC SINUSITIS
     Dosage: UNK
     Route: 045
  5. ASPIRIN                            /00002701/ [Concomitant]
     Active Substance: ASPIRIN
     Indication: PROPHYLAXIS
     Dosage: UNK, QD
  6. XANAX [Concomitant]
     Active Substance: ALPRAZOLAM
     Indication: ANXIETY
     Dosage: UNK
     Route: 048
  7. CINNAMON                           /01647501/ [Concomitant]
     Active Substance: CINNAMON
     Indication: PAIN
  8. FERROUS SULFATE. [Concomitant]
     Active Substance: FERROUS SULFATE
     Indication: MINERAL SUPPLEMENTATION
     Dosage: UNK, QD
     Route: 048
  9. PREDNISONE. [Concomitant]
     Active Substance: PREDNISONE
     Indication: GOUT
     Dosage: 5 MG, BID
     Route: 048
     Dates: start: 2017, end: 2017
  10. NATURAL LAXATIVE                 /00142201/ [Concomitant]
     Indication: CONSTIPATION
     Dosage: UNK, QD
     Route: 048
  11. CINNAMON                           /01647501/ [Concomitant]
     Active Substance: CINNAMON
     Indication: SUPPLEMENTATION THERAPY
     Dosage: 2000 UNITS, BID
     Route: 048
  12. GLIPIZIDE. [Concomitant]
     Active Substance: GLIPIZIDE
     Indication: TYPE 2 DIABETES MELLITUS
     Dosage: UNK, QD
     Route: 048
  13. ULORIC [Suspect]
     Active Substance: FEBUXOSTAT
     Indication: BLOOD URIC ACID INCREASED
     Dosage: 40 MG, QD
     Route: 048
     Dates: start: 2016
  14. FISH OIL [Concomitant]
     Active Substance: FISH OIL
     Indication: SUPPLEMENTATION THERAPY
     Dosage: UNK, QD
     Route: 048

REACTIONS (3)
  - Gout [Recovering/Resolving]
  - Drug ineffective [Unknown]
  - Chondrocalcinosis pyrophosphate [Unknown]
